FAERS Safety Report 7155678-9 (Version None)
Quarter: 2010Q4

REPORT INFORMATION
  Report Type: 
  Country: None (occurrence: None)
  Receive Date: 20101214
  Receipt Date: 20101201
  Transmission Date: 20110411
  Serious: Yes (Other)
  Sender: FDA-Public Use
  Company Number: US-TEVA-258406USA

PATIENT

DRUGS (1)
  1. IFOSFAMIDE INJECTION, 50 MG/ML, PACKAGED IN 1 GR/20 ML AND 3 GR/60 ML [Suspect]
     Dosage: 50 MG/ML; 3GM/M2 IV OVER 3 HRS
     Route: 042

REACTIONS (4)
  - CONVULSION [None]
  - PRODUCT MEASURED POTENCY ISSUE [None]
  - UNRESPONSIVE TO STIMULI [None]
  - URINARY INCONTINENCE [None]
